FAERS Safety Report 10308361 (Version 2)
Quarter: 2014Q3

REPORT INFORMATION
  Report Type: Spontaneous
  Country: JP (occurrence: JP)
  Receive Date: 20140716
  Receipt Date: 20140924
  Transmission Date: 20150326
  Serious: Yes (Hospitalization)
  Sender: FDA-Public Use
  Company Number: JP-PFIZER INC-2014194790

PATIENT
  Sex: Male

DRUGS (3)
  1. LYRICA [Suspect]
     Active Substance: PREGABALIN
     Dosage: 225 MG, DAILY (2 CAPSULES OF 75 MG IN THE MORNING AND 1 CAPSULE OF 75 MG IN THE EVENING)
     Route: 048
     Dates: start: 20140414
  2. LYRICA [Suspect]
     Active Substance: PREGABALIN
     Indication: PAIN
     Dosage: 75 MG, DAILY
     Route: 048
     Dates: start: 201403
  3. LYRICA [Suspect]
     Active Substance: PREGABALIN
     Dosage: 225 MG, DAILY (2 CAPSULES OF 75 MG IN THE MORING AND 1 CAPSULE OF 75 MG IN THE EVENING)
     Route: 048
     Dates: start: 20140702

REACTIONS (13)
  - Feeling abnormal [Unknown]
  - Somnolence [Unknown]
  - Fall [Unknown]
  - Hallucination [Unknown]
  - Tremor [Unknown]
  - Convulsion [Unknown]
  - Vomiting [Unknown]
  - Loss of consciousness [Unknown]
  - Dizziness [Unknown]
  - Nausea [Unknown]
  - Dizziness [Unknown]
  - Dysstasia [Unknown]
  - Asthenia [Unknown]

NARRATIVE: CASE EVENT DATE: 201403
